FAERS Safety Report 5577222-X (Version None)
Quarter: 2007Q4

REPORT INFORMATION
  Report Type: 
  Country: None (occurrence: None)
  Receive Date: 20071130
  Receipt Date: 20070725
  Transmission Date: 20080405
  Serious: No
  Sender: FDA-Public Use
  Company Number: US200707006292

PATIENT
  Age: 68 Year
  Sex: Male

DRUGS (2)
  1. BYETTA [Suspect]
     Indication: TYPE 2 DIABETES MELLITUS
     Dosage: 10 UG
     Dates: start: 20070307, end: 20070716
  2. AMARYL [Concomitant]

REACTIONS (1)
  - TREMOR [None]
